FAERS Safety Report 20264098 (Version 1)
Quarter: 2021Q4

REPORT INFORMATION
  Report Type: Spontaneous
  Country: US (occurrence: US)
  Receive Date: 20211231
  Receipt Date: 20211231
  Transmission Date: 20220303
  Serious: No
  Sender: FDA-Public Use
  Company Number: US-SA-SAC20211227000781

PATIENT
  Age: 60 Year
  Sex: Female

DRUGS (1)
  1. AUBAGIO [Suspect]
     Active Substance: TERIFLUNOMIDE
     Indication: Muscle spasms
     Dosage: 14 MG, QD
     Route: 048

REACTIONS (3)
  - Anal incontinence [Recovering/Resolving]
  - Alopecia [Recovering/Resolving]
  - Off label use [Unknown]
